FAERS Safety Report 23647664 (Version 3)
Quarter: 2024Q2

REPORT INFORMATION
  Report Type: Spontaneous
  Country: JP (occurrence: JP)
  Receive Date: 20240319
  Receipt Date: 20240621
  Transmission Date: 20240715
  Serious: Yes (Life-Threatening, Hospitalization, Other)
  Sender: FDA-Public Use
  Company Number: JP-MTPC-MTPC2024-0005810

PATIENT
  Age: 8 Year
  Sex: Male

DRUGS (6)
  1. REMICADE [Suspect]
     Active Substance: INFLIXIMAB
     Indication: Crohn^s disease
     Dosage: 120 MILLIGRAM, QD
     Route: 041
     Dates: start: 20240226, end: 20240226
  2. REMICADE [Suspect]
     Active Substance: INFLIXIMAB
     Dosage: 120 MILLIGRAM, QD
     Route: 041
     Dates: start: 20240311, end: 20240311
  3. NEXIUM [Concomitant]
     Active Substance: ESOMEPRAZOLE MAGNESIUM
     Dosage: UNK
     Route: 048
     Dates: start: 20240210, end: 20240311
  4. AZATHIOPRINE [Concomitant]
     Active Substance: AZATHIOPRINE
     Dosage: UNK
     Route: 048
     Dates: start: 20240229, end: 20240310
  5. SOLU-CORTEF [Concomitant]
     Active Substance: HYDROCORTISONE SODIUM SUCCINATE
     Dosage: UNK
     Route: 042
     Dates: start: 20240311, end: 20240311
  6. POLARAMINE [Concomitant]
     Active Substance: DEXCHLORPHENIRAMINE MALEATE
     Dosage: UNK
     Route: 042
     Dates: start: 20240311

REACTIONS (2)
  - Depressed level of consciousness [Not Recovered/Not Resolved]
  - Brain stem haemorrhage [Not Recovered/Not Resolved]

NARRATIVE: CASE EVENT DATE: 20240311
